FAERS Safety Report 10440101 (Version 1)
Quarter: 2014Q3

REPORT INFORMATION
  Report Type: Spontaneous
  Country: US (occurrence: US)
  Receive Date: 20140908
  Receipt Date: 20140908
  Transmission Date: 20150326
  Serious: No
  Sender: FDA-Public Use
  Company Number: US-BRISTOL-MYERS SQUIBB COMPANY-20692695

PATIENT
  Age: 28 Year
  Sex: Male
  Weight: 96.6 kg

DRUGS (4)
  1. ABILIFY [Suspect]
     Active Substance: ARIPIPRAZOLE
     Indication: SCHIZOAFFECTIVE DISORDER
     Dosage: INTERRUPTED: 1979
     Route: 048
     Dates: start: 1979
  2. DEPAKOTE [Concomitant]
     Active Substance: DIVALPROEX SODIUM
  3. CLONAZEPAM. [Concomitant]
     Active Substance: CLONAZEPAM
  4. HALDOL [Concomitant]
     Active Substance: HALOPERIDOL

REACTIONS (2)
  - Hallucination, auditory [Unknown]
  - Feeling abnormal [Unknown]

NARRATIVE: CASE EVENT DATE: 1979
